FAERS Safety Report 4360716-2 (Version None)
Quarter: 2004Q2

REPORT INFORMATION
  Report Type: 
  Country: None (occurrence: None)
  Receive Date: 20040514
  Receipt Date: 20040428
  Transmission Date: 20050107
  Serious: Yes (Hospitalization)
  Sender: FDA-Public Use
  Company Number: 196908

PATIENT
  Age: 33 Year
  Sex: Male
  Weight: 54.4316 kg

DRUGS (1)
  1. AVONEX ^BIOGEN^ [Suspect]
     Indication: MULTIPLE SCLEROSIS

REACTIONS (3)
  - APPENDICITIS [None]
  - INJECTION SITE EXTRAVASATION [None]
  - MUSCULAR WEAKNESS [None]
